FAERS Safety Report 18908160 (Version 1)
Quarter: 2021Q1

REPORT INFORMATION
  Report Type: Spontaneous
  Country: US (occurrence: US)
  Receive Date: 20210218
  Receipt Date: 20210218
  Transmission Date: 20210420
  Serious: No
  Sender: FDA-Public Use
  Company Number: US-ASTRAZENECA-2021A057139

PATIENT
  Age: 19990 Day
  Sex: Female
  Weight: 53.1 kg

DRUGS (2)
  1. SYMBICORT [Suspect]
     Active Substance: BUDESONIDE\FORMOTEROL FUMARATE DIHYDRATE
     Indication: ASTHMA
     Dosage: SYMBICORT, 80?4.5 MCG, 2 PUFFS, TWICE A DAY
     Route: 055
     Dates: start: 202007
  2. ALBUTEROL. [Concomitant]
     Active Substance: ALBUTEROL
     Indication: ASTHMA

REACTIONS (5)
  - Weight increased [Unknown]
  - Device failure [Unknown]
  - Cough [Unknown]
  - Product dose omission issue [Unknown]
  - Intentional device misuse [Unknown]

NARRATIVE: CASE EVENT DATE: 20210207
